FAERS Safety Report 6956890 (Version 2)
Quarter: 2015Q2

REPORT INFORMATION
  Report Type: Spontaneous
  Country: US (occurrence: US)
  Receive Date: 20090331
  Receipt Date: 20150611
  Transmission Date: 20150821
  Serious: Yes (Other)
  Sender: FDA-Public Use
  Company Number: US-PFIZER INC-2009186186

PATIENT
  Age: 23 Year
  Sex: Male

DRUGS (1)
  1. CHANTIX [Suspect]
     Active Substance: VARENICLINE TARTRATE
     Indication: SMOKING CESSATION THERAPY
     Dosage: UNK

REACTIONS (7)
  - Histrionic personality disorder [Unknown]
  - Dissociation [Unknown]
  - Completed suicide [Unknown]
  - Nightmare [Unknown]
  - Mental disorder [Unknown]
  - Feeling abnormal [Unknown]
  - Homicide [Unknown]

NARRATIVE: CASE EVENT DATE: 20080518
